FAERS Safety Report 17093282 (Version 1)
Quarter: 2019Q4

REPORT INFORMATION
  Report Type: Spontaneous
  Country: GB (occurrence: GB)
  Receive Date: 20191129
  Receipt Date: 20191129
  Transmission Date: 20200122
  Serious: Yes (Other)
  Sender: FDA-Public Use
  Company Number: GB-TEVA-2019-GB-1142183

PATIENT
  Age: 20 Year
  Sex: Male
  Weight: 92 kg

DRUGS (8)
  1. RANITIDINE. [Concomitant]
     Active Substance: RANITIDINE
     Dosage: 300 MG PER DAY
     Dates: start: 20190916
  2. PEPPERMINT OIL [Concomitant]
     Active Substance: PEPPERMINT OIL
     Dosage: 0.6 ML PER DAY
     Dates: start: 20190925
  3. RANITIDINE. [Concomitant]
     Active Substance: RANITIDINE
     Dosage: 300 ML PER DAY
     Dates: start: 20190812
  4. LANSOPRAZOLE. [Suspect]
     Active Substance: LANSOPRAZOLE
     Indication: DYSPEPSIA
     Dosage: 15 MG
     Dates: start: 20190929, end: 20191001
  5. MEBEVERINE [Concomitant]
     Active Substance: MEBEVERINE
     Dosage: 405 MG PER DAY
     Dates: start: 20190925
  6. TRIMETHOPRIM. [Concomitant]
     Active Substance: TRIMETHOPRIM
     Dosage: 400 MG PER DAY
     Dates: start: 20190927
  7. CYCLIZINE [Concomitant]
     Active Substance: CYCLIZINE
     Dosage: 150 MG PER DAY
     Dates: start: 20190812
  8. ACIDEX [Concomitant]
     Active Substance: CALCIUM CARBONATE\SODIUM ALGINATE\SODIUM BICARBONATE
     Dosage: AFTER MEAL.10 ML
     Dates: start: 20190925

REACTIONS (2)
  - Respiratory rate increased [Recovered/Resolved]
  - Wheezing [Recovered/Resolved]

NARRATIVE: CASE EVENT DATE: 20190929
